FAERS Safety Report 19802207 (Version 1)
Quarter: 2021Q3

REPORT INFORMATION
  Report Type: Spontaneous
  Country: US (occurrence: US)
  Receive Date: 20210903
  Receipt Date: 20210903
  Transmission Date: 20211014
  Serious: No
  Sender: FDA-Public Use
  Company Number: None

PATIENT
  Sex: Female

DRUGS (1)
  1. COSENTYX [Suspect]
     Active Substance: SECUKINUMAB
     Indication: PSORIASIS
     Route: 058
     Dates: start: 202008

REACTIONS (5)
  - Rash macular [None]
  - Therapeutic product effect incomplete [None]
  - Skin burning sensation [None]
  - Pruritus [None]
  - Insurance issue [None]
